FAERS Safety Report 24048481 (Version 1)
Quarter: 2024Q3

REPORT INFORMATION
  Report Type: Spontaneous
  Country: US (occurrence: US)
  Receive Date: 20240704
  Receipt Date: 20240704
  Transmission Date: 20241016
  Serious: No
  Sender: BRISTOL MYERS SQUIBB
  Company Number: US-BRISTOL-MYERS SQUIBB COMPANY-2024-106655

PATIENT
  Age: 74 Year
  Sex: Female
  Weight: 59.87 kg

DRUGS (2)
  1. POMALYST [Suspect]
     Active Substance: POMALIDOMIDE
     Indication: Plasma cell myeloma
     Route: 048
     Dates: start: 20230721
  2. DARATUMUMAB [Concomitant]
     Active Substance: DARATUMUMAB
     Indication: Product used for unknown indication

REACTIONS (2)
  - Rash [Unknown]
  - Off label use [Unknown]
